FAERS Safety Report 24810087 (Version 1)
Quarter: 2025Q1

REPORT INFORMATION
  Report Type: Spontaneous
  Country: US (occurrence: None)
  Receive Date: 20250103
  Receipt Date: 20250103
  Transmission Date: 20250409
  Serious: Yes (unspecified)
  Sender: FDA-CTU
  Company Number: None

PATIENT
  Age: 5 Year
  Sex: Female
  Weight: 15.8 kg

DRUGS (3)
  1. LINEZOLID [Suspect]
     Active Substance: LINEZOLID
     Route: 042
     Dates: start: 20240123, end: 20240228
  2. ENALAPRIL [Suspect]
     Active Substance: ENALAPRIL
  3. LEVOFLOXACIN [Suspect]
     Active Substance: LEVOFLOXACIN

REACTIONS (12)
  - Dizziness [None]
  - Rash [None]
  - Chest discomfort [None]
  - Dyspnoea [None]
  - Arthralgia [None]
  - Pain in extremity [None]
  - Neuropathy peripheral [None]
  - Therapy cessation [None]
  - Arthralgia [None]
  - Pain in extremity [None]
  - Abdominal pain [None]
  - Nausea [None]

NARRATIVE: CASE EVENT DATE: 20240229
